FAERS Safety Report 14045243 (Version 1)
Quarter: 2017Q4

REPORT INFORMATION
  Report Type: Spontaneous
  Country: US (occurrence: US)
  Receive Date: 20171005
  Receipt Date: 20171005
  Transmission Date: 20180321
  Serious: Yes (Hospitalization)
  Sender: FDA-Public Use
  Company Number: US-NOVOPROD-565534

PATIENT
  Age: 78 Year
  Sex: Female
  Weight: 131.52 kg

DRUGS (1)
  1. LEVEMIR [Suspect]
     Active Substance: INSULIN DETEMIR
     Indication: TYPE 2 DIABETES MELLITUS
     Dosage: 51 U IN AM AND 55 U IN PM
     Route: 058

REACTIONS (1)
  - Atrial fibrillation [Unknown]
